FAERS Safety Report 5864056-1 (Version None)
Quarter: 2008Q3

REPORT INFORMATION
  Report Type: 
  Country: None (occurrence: None)
  Receive Date: 20080829
  Receipt Date: 20080818
  Transmission Date: 20090109
  Serious: Yes (Disabling)
  Sender: FDA-Public Use
  Company Number: US-BAYER-200827123NA

PATIENT
  Sex: Female
  Weight: 85 kg

DRUGS (1)
  1. AVELOX [Suspect]
     Indication: ACUTE SINUSITIS
     Route: 048
     Dates: start: 20080626, end: 20080629

REACTIONS (5)
  - ARTHRALGIA [None]
  - GAIT DISTURBANCE [None]
  - JOINT SWELLING [None]
  - OEDEMA PERIPHERAL [None]
  - PAIN IN EXTREMITY [None]
